FAERS Safety Report 16682367 (Version 1)
Quarter: 2019Q3

REPORT INFORMATION
  Report Type: Spontaneous
  Country: NL (occurrence: NL)
  Receive Date: 20190808
  Receipt Date: 20190808
  Transmission Date: 20191004
  Serious: Yes (Other)
  Sender: FDA-Public Use
  Company Number: NL-PFIZER INC-2019336441

PATIENT
  Age: 86 Year
  Sex: Male
  Weight: 83 kg

DRUGS (13)
  1. CETOMACROGOL [Concomitant]
     Active Substance: COSMETICS
     Dosage: 1 DF, UNK (IF NEEDED 2DD1)
  2. PARACETAMOL [Concomitant]
     Active Substance: ACETAMINOPHEN
     Dosage: 500 MG, 2X/DAY (2DD1) (EVERY 12 HOURS)
  3. XELJANZ [Suspect]
     Active Substance: TOFACITINIB CITRATE
     Indication: RHEUMATOID ARTHRITIS
     Dosage: 5 MG, 2X/DAY (EVERY 12 HOURS)
     Route: 048
     Dates: start: 20190429
  4. FOLIUMZUUR [Concomitant]
     Active Substance: FOLIC ACID
     Dosage: 5 MG, UNK (2XPER WEEK 1) (EVERY 3 DAYS)
  5. PANTOPRAZOLE [Concomitant]
     Active Substance: PANTOPRAZOLE
     Dosage: 40 MG, 1X/DAY (1DD1)
  6. PERINDOPRIL [Concomitant]
     Active Substance: PERINDOPRIL
     Dosage: 2 MG, 1X/DAY (1DD1)
  7. FERROFUMARAAT [Concomitant]
     Dosage: 200 MG, 1X/DAY (1DD1)
  8. PREDNISOLONE. [Concomitant]
     Active Substance: PREDNISOLONE
     Dosage: 7 MG, 1X/DAY (1DD7,5MG)
  9. METHOTREXATE. [Concomitant]
     Active Substance: METHOTREXATE
     Dosage: 25 MG, WEEKLY (1XPER WEEK 25MG)
  10. VESOMNI [Concomitant]
     Active Substance: SOLIFENACIN\TAMSULOSIN
     Dosage: 1 DF, 1X/DAY (1DD1)
  11. RISEDRONIC ACID [Concomitant]
     Active Substance: RISEDRONIC ACID
     Dosage: 35 MG, UNK
  12. HYDROXYCHLOROQUINE [Concomitant]
     Active Substance: HYDROXYCHLOROQUINE
     Dosage: 200 MG, 2X/DAY (2DD1) (EVERY 12 HOURS)
  13. CALCIUM/COLECALCIFEROL [Concomitant]
     Dosage: 1 DF, 1X/DAY (1DD1)

REACTIONS (1)
  - Myocardial infarction [Recovering/Resolving]

NARRATIVE: CASE EVENT DATE: 20190609
